FAERS Safety Report 23188923 (Version 1)
Quarter: 2023Q4

REPORT INFORMATION
  Report Type: Other
  Country: SI (occurrence: None)
  Receive Date: 20231115
  Receipt Date: 20231115
  Transmission Date: 20240110
  Serious: Yes (Hospitalization, Other)
  Sender: FDA-Public Use
  Company Number: SI-Invatech-000313

PATIENT
  Age: 24 Year
  Sex: Male

DRUGS (10)
  1. NAPROXEN SODIUM [Suspect]
     Active Substance: NAPROXEN SODIUM
     Indication: Pain
     Dosage: 550 MG/12 HOURS
  2. PREDNISOLONE [Concomitant]
     Active Substance: PREDNISOLONE
     Indication: Rash
     Dosage: 20 MG PER DAY
     Route: 042
  3. EPINEPHRINE [Concomitant]
     Active Substance: EPINEPHRINE
     Indication: Product used for unknown indication
  4. TICAGRELOR [Concomitant]
     Active Substance: TICAGRELOR
     Indication: Peripheral artery stenosis
     Dosage: 90MG/12 HOURS
  5. PANTOPRAZOLE [Concomitant]
     Active Substance: PANTOPRAZOLE
     Indication: Product used for unknown indication
     Dosage: 40 MG
  6. CYCLOSPORINE [Concomitant]
     Active Substance: CYCLOSPORINE
     Indication: Product used for unknown indication
     Dosage: 100 MG + 100 MG + 150 MG
  7. MONTELUKAST [Concomitant]
     Active Substance: MONTELUKAST SODIUM
     Indication: Product used for unknown indication
     Dosage: 10 MG
  8. BILASTINE [Concomitant]
     Active Substance: BILASTINE
     Indication: Product used for unknown indication
     Dosage: 20 MG X 2 TABLETS EVERY 12 HOURS
  9. PREDNISOLONE [Concomitant]
     Active Substance: PREDNISOLONE
     Indication: Rash
     Dosage: 40 MG PER DAY
     Route: 042
  10. PREDNISOLONE [Concomitant]
     Active Substance: PREDNISOLONE
     Indication: Rash
     Dosage: 1 MG/KG PER DAY
     Route: 042

REACTIONS (8)
  - Abdominal distension [Recovered/Resolved]
  - Diarrhoea [Recovered/Resolved]
  - Lymphadenopathy [Recovered/Resolved]
  - Arthralgia [Recovered/Resolved]
  - Haematuria [Recovered/Resolved]
  - Renal infarct [Recovered/Resolved]
  - Renal impairment [Recovered/Resolved]
  - Cutaneous vasculitis [Recovered/Resolved]
